FAERS Safety Report 4648860-3 (Version None)
Quarter: 2005Q2

REPORT INFORMATION
  Report Type: 
  Country: None (occurrence: None)
  Receive Date: 20050427
  Receipt Date: 20050407
  Transmission Date: 20051028
  Serious: Yes (Hospitalization, Other)
  Sender: FDA-Public Use
  Company Number: USA050291881

PATIENT
  Age: 65 Year
  Sex: Female

DRUGS (3)
  1. FORTEO [Suspect]
     Indication: OSTEOPOROSIS
     Dates: start: 20050221
  2. ACTONEL [Concomitant]
  3. FOSAMAX [Concomitant]

REACTIONS (10)
  - BLOOD PRESSURE SYSTOLIC INCREASED [None]
  - CARDIAC FLUTTER [None]
  - CHEST PAIN [None]
  - DIZZINESS [None]
  - DYSPEPSIA [None]
  - DYSPNOEA [None]
  - HEADACHE [None]
  - HEART RATE INCREASED [None]
  - NERVOUSNESS [None]
  - PHARMACEUTICAL PRODUCT COMPLAINT [None]
